FAERS Safety Report 14630615 (Version 18)
Quarter: 2019Q3

REPORT INFORMATION
  Report Type: Spontaneous
  Country: US (occurrence: US)
  Receive Date: 20180313
  Receipt Date: 20190712
  Transmission Date: 20191004
  Serious: Yes (Hospitalization, Disabling, Other)
  Sender: FDA-Public Use
  Company Number: US-GLAXOSMITHKLINE-US2018GSK041629

PATIENT
  Age: 55 Year
  Sex: Female
  Weight: 66.21 kg

DRUGS (4)
  1. OXACILLIN [Suspect]
     Active Substance: OXACILLIN SODIUM
     Indication: PRODUCT USED FOR UNKNOWN INDICATION
     Dosage: UNK UNK, U
  2. NORTRIPTYLINE [Concomitant]
     Active Substance: NORTRIPTYLINE
  3. IMITREX [Suspect]
     Active Substance: SUMATRIPTAN SUCCINATE
     Indication: MIGRAINE
     Dosage: UNK, PRN
     Route: 058
     Dates: start: 20100507, end: 20140408
  4. ATORVASTATIN [Concomitant]
     Active Substance: ATORVASTATIN

REACTIONS (37)
  - Ischaemic stroke [Unknown]
  - Anxiety [Unknown]
  - Frustration tolerance decreased [Unknown]
  - Ill-defined disorder [Unknown]
  - Disability [Not Recovered/Not Resolved]
  - Migraine [Unknown]
  - Inability to afford medication [Unknown]
  - Rash [Unknown]
  - Therapeutic product effect incomplete [Unknown]
  - Speech disorder [Unknown]
  - Dysstasia [Unknown]
  - Asthenia [Unknown]
  - Personality change [Unknown]
  - Gait disturbance [Unknown]
  - Headache [Recovering/Resolving]
  - Swelling [Unknown]
  - Musculoskeletal disorder [Unknown]
  - Vision blurred [Unknown]
  - Embolic cerebral infarction [Unknown]
  - General physical health deterioration [Unknown]
  - Condition aggravated [Unknown]
  - Loss of personal independence in daily activities [Unknown]
  - Feeling abnormal [Unknown]
  - Photophobia [Unknown]
  - Confusional state [Unknown]
  - Drug hypersensitivity [Unknown]
  - Thrombotic stroke [Unknown]
  - Fatigue [Unknown]
  - Impaired work ability [Not Recovered/Not Resolved]
  - Memory impairment [Unknown]
  - Adverse event [Unknown]
  - Adverse drug reaction [Unknown]
  - Visual impairment [Unknown]
  - Aphasia [Unknown]
  - Hemiparesis [Unknown]
  - Anger [Unknown]
  - Balance disorder [Unknown]

NARRATIVE: CASE EVENT DATE: 2014
